FAERS Safety Report 18875565 (Version 3)
Quarter: 2021Q1

REPORT INFORMATION
  Report Type: Report from Study
  Country: US (occurrence: US)
  Receive Date: 20210210
  Receipt Date: 20210305
  Transmission Date: 20210420
  Serious: Yes (Hospitalization)
  Sender: FDA-Public Use
  Company Number: US-PFIZER INC-2021124195

PATIENT
  Age: 77 Year
  Sex: Female

DRUGS (4)
  1. PALBOCICLIB [Suspect]
     Active Substance: PALBOCICLIB
     Indication: NON-SMALL CELL LUNG CANCER
     Dosage: 125 MG, 1X/DAY
     Route: 048
     Dates: start: 20201221, end: 20210127
  2. CB?839 [Suspect]
     Active Substance: TELAGLENASTAT
     Dosage: 600 MG
     Route: 048
     Dates: start: 20210208
  3. PALBOCICLIB [Suspect]
     Active Substance: PALBOCICLIB
     Dosage: 100 MG
     Route: 048
     Dates: start: 20210208
  4. CB?839 [Suspect]
     Active Substance: TELAGLENASTAT
     Indication: NON-SMALL CELL LUNG CANCER
     Dosage: 800 MG, 2X/DAY
     Route: 048
     Dates: start: 20201221, end: 20210127

REACTIONS (1)
  - Transaminases increased [Recovered/Resolved with Sequelae]

NARRATIVE: CASE EVENT DATE: 20210127
